FAERS Safety Report 8906807 (Version 2)
Quarter: 2012Q4

REPORT INFORMATION
  Report Type: 
  Country: GB (occurrence: GB)
  Receive Date: 20121114
  Receipt Date: 20121122
  Transmission Date: 20130627
  Serious: Yes (Other)
  Sender: FDA-Public Use
  Company Number: GB-AMGEN-GBRSP2012071860

PATIENT
  Age: 31 Year
  Sex: Female
  Weight: 63.1 kg

DRUGS (9)
  1. ARANESP [Suspect]
     Indication: NEPHROGENIC ANAEMIA
     Dosage: 120 mug, qwk
     Route: 042
     Dates: start: 20120730
  2. VENOFER [Concomitant]
     Indication: NEPHROGENIC ANAEMIA
     Dosage: 75-100 mg, 2 times/wk
     Route: 042
     Dates: start: 20120903, end: 20121119
  3. FRAGMIN [Concomitant]
     Indication: HAEMODIALYSIS
     Dosage: 5000 IU, qd
     Route: 042
     Dates: start: 20120716
  4. FRAGMIN [Concomitant]
     Indication: HAEMODIALYSIS
  5. RENAGEL                            /01459901/ [Concomitant]
     Dosage: 800 mg, tid
  6. FUROSEMIDE [Concomitant]
     Dosage: 20 mg, qd
  7. LABETALOL [Concomitant]
     Dosage: 200 mg, bid
  8. CLONAZEPAM [Concomitant]
     Dosage: 0.5 mg, qd
  9. ALFACALCIDOL [Concomitant]
     Indication: RENAL IMPAIRMENT
     Dosage: 1.25 mug, qd
     Route: 048
     Dates: start: 201201

REACTIONS (3)
  - Premature delivery [Unknown]
  - Premature separation of placenta [Unknown]
  - Placenta praevia [Unknown]
